FAERS Safety Report 9189876 (Version 1)
Quarter: 2013Q1

REPORT INFORMATION
  Report Type: Spontaneous
  Country: US (occurrence: None)
  Receive Date: 20120703
  Receipt Date: 20120703
  Transmission Date: 20140127
  Serious: No
  Sender: FDA-Public Use
  Company Number: PHEH2012US009532

PATIENT
  Age: 21 Year
  Sex: Female
  Weight: 111.1 kg

DRUGS (4)
  1. GILENYA (FTY) CAPSULE, 0.5MG [Suspect]
     Route: 048
  2. LYRICA (PREGABALIN) [Concomitant]
  3. BYSTOLIC (NEBIVOLOL HYDROCHLORIDE) [Concomitant]
  4. IBUPROFEN  (IBUPROFEN) [Concomitant]

REACTIONS (3)
  - Nasopharyngitis [None]
  - Pyrexia [None]
  - Throat irritation [None]
